FAERS Safety Report 5326795-0 (Version None)
Quarter: 2007Q2

REPORT INFORMATION
  Report Type: 
  Country: None (occurrence: None)
  Receive Date: 20070516
  Receipt Date: 20070504
  Transmission Date: 20071010
  Serious: Yes (Hospitalization, Disabling)
  Sender: FDA-Public Use
  Company Number: DE-GILEAD-2007-0011087

PATIENT
  Sex: Male
  Weight: 70 kg

DRUGS (2)
  1. TRUVADA [Suspect]
     Indication: HIV INFECTION
  2. EFAVIRENZ [Suspect]
     Indication: HIV INFECTION

REACTIONS (5)
  - BACTERIAL INFECTION [None]
  - HYPERSENSITIVITY [None]
  - IMMUNE RECONSTITUTION SYNDROME [None]
  - PYREXIA [None]
  - URINARY TRACT INFECTION [None]
